FAERS Safety Report 6731586-X (Version None)
Quarter: 2010Q2

REPORT INFORMATION
  Report Type: 
  Country: None (occurrence: None)
  Receive Date: 20100518
  Receipt Date: 20100518
  Transmission Date: 20101027
  Serious: Yes (Other)
  Sender: FDA-Public Use
  Company Number: None

PATIENT
  Age: 93 Year
  Sex: Male

DRUGS (2)
  1. LOVENOX [Suspect]
     Indication: ATRIAL FIBRILLATION
     Dosage: 80 MG Q12H SQ
     Route: 058
     Dates: start: 20100210, end: 20100215
  2. LOVENOX [Suspect]
     Indication: TRANSIENT ISCHAEMIC ATTACK
     Dosage: 80 MG Q12H SQ
     Route: 058
     Dates: start: 20100210, end: 20100215

REACTIONS (2)
  - HAEMOPTYSIS [None]
  - HAEMORRHAGE [None]
